FAERS Safety Report 8622622-4 (Version None)
Quarter: 2012Q3

REPORT INFORMATION
  Report Type: 
  Country: None (occurrence: None)
  Receive Date: 20120813
  Receipt Date: 20120801
  Transmission Date: 20120928
  Serious: Yes (Hospitalization)
  Sender: FDA-Public Use
  Company Number: ACO_31372_2012

PATIENT
  Age: 67 Year
  Sex: Female

DRUGS (6)
  1. COPAXONE [Concomitant]
  2. VALIUM [Concomitant]
  3. PROVIGIL [Concomitant]
  4. OXYCONTIN [Concomitant]
  5. OXYCODONE HCL [Concomitant]
  6. AMPYRA [Suspect]
     Indication: MULTIPLE SCLEROSIS
     Dates: start: 20120412

REACTIONS (3)
  - EYE DISORDER [None]
  - BRONCHITIS [None]
  - KNEE OPERATION [None]
